FAERS Safety Report 4409299-9 (Version None)
Quarter: 2004Q3

REPORT INFORMATION
  Report Type: 
  Country: None (occurrence: None)
  Receive Date: 20040722
  Receipt Date: 20040708
  Transmission Date: 20050211
  Serious: Yes (Other)
  Sender: FDA-Public Use
  Company Number: US-JNJFOC-20040302109

PATIENT
  Age: 46 Year
  Sex: Male
  Weight: 67.1324 kg

DRUGS (6)
  1. REMICADE [Suspect]
     Indication: CROHN'S DISEASE
     Dosage: INTRAVENOUS
     Route: 042
     Dates: start: 20030201, end: 20030701
  2. PREDNISONE [Concomitant]
  3. NEXIUM [Concomitant]
  4. LORAZEPAM [Concomitant]
  5. MULTIVITAMINS (MUILTIVITAMINS) [Concomitant]
  6. CALCIUM (CALCIUIM) [Concomitant]

REACTIONS (3)
  - ARTHRALGIA [None]
  - DEEP VEIN THROMBOSIS [None]
  - LUPUS-LIKE SYNDROME [None]
